FAERS Safety Report 5117965-5 (Version None)
Quarter: 2006Q3

REPORT INFORMATION
  Report Type: 
  Country: None (occurrence: None)
  Receive Date: 20060926
  Receipt Date: 20060914
  Transmission Date: 20061208
  Serious: Yes (Hospitalization)
  Sender: FDA-Public Use
  Company Number: 2006EU002587

PATIENT
  Age: 28 Year
  Sex: Male

DRUGS (1)
  1. FK506                 (TACROLIMUS) [Suspect]
     Indication: LIVER TRANSPLANT
     Dosage: 6 MG, UNKNOWN/D, ORAL
     Route: 048
     Dates: start: 20030401

REACTIONS (2)
  - CONDITION AGGRAVATED [None]
  - CROHN'S DISEASE [None]
